FAERS Safety Report 15507358 (Version 3)
Quarter: 2020Q3

REPORT INFORMATION
  Report Type: Spontaneous
  Country: US (occurrence: US)
  Receive Date: 20181016
  Receipt Date: 20200917
  Transmission Date: 20201102
  Serious: Yes (Other)
  Sender: FDA-Public Use
  Company Number: US-SA-2018SA281852

PATIENT

DRUGS (1)
  1. DUPIXENT [Suspect]
     Active Substance: DUPILUMAB
     Indication: DERMATITIS ATOPIC
     Dosage: 300 MG, QOW
     Route: 058
     Dates: start: 20170503

REACTIONS (11)
  - Vitreous floaters [Recovering/Resolving]
  - Skin ulcer [Unknown]
  - Skin hypertrophy [Unknown]
  - Nail bed infection viral [Unknown]
  - Eye irritation [Unknown]
  - Onychomycosis [Unknown]
  - Nausea [Recovering/Resolving]
  - Rash [Unknown]
  - Visual impairment [Recovering/Resolving]
  - Eye pruritus [Unknown]
  - Dry eye [Unknown]

NARRATIVE: CASE EVENT DATE: 2018
